FAERS Safety Report 22314082 (Version 1)
Quarter: 2023Q2

REPORT INFORMATION
  Report Type: Spontaneous
  Country: US (occurrence: US)
  Receive Date: 20230512
  Receipt Date: 20230512
  Transmission Date: 20230722
  Serious: Yes (Hospitalization)
  Sender: FDA-Public Use
  Company Number: None

PATIENT
  Age: 81 Year
  Sex: Male

DRUGS (8)
  1. FUROSEMIDE [Suspect]
     Active Substance: FUROSEMIDE
     Indication: Oedema
     Route: 065
  2. FUROSEMIDE [Suspect]
     Active Substance: FUROSEMIDE
     Indication: Pulmonary hypertension
  3. FUROSEMIDE [Suspect]
     Active Substance: FUROSEMIDE
     Indication: Essential hypertension
  4. CHLOROTHIAZIDE [Suspect]
     Active Substance: CHLOROTHIAZIDE
     Indication: Essential hypertension
     Dosage: BOLUS
     Route: 065
  5. CHLOROTHIAZIDE [Suspect]
     Active Substance: CHLOROTHIAZIDE
     Indication: Pulmonary hypertension
  6. CHLOROTHIAZIDE [Suspect]
     Active Substance: CHLOROTHIAZIDE
     Indication: Oedema
  7. SODIUM THIOSULFATE [Concomitant]
     Active Substance: SODIUM THIOSULFATE
     Indication: Product used for unknown indication
     Route: 065
  8. TRIAMTERENE [Concomitant]
     Active Substance: TRIAMTERENE
     Indication: Product used for unknown indication
     Route: 065

REACTIONS (2)
  - Metabolic alkalosis [Unknown]
  - Blood potassium decreased [Recovering/Resolving]
